FAERS Safety Report 10304882 (Version 1)
Quarter: 2014Q3

REPORT INFORMATION
  Report Type: Spontaneous
  Country: US (occurrence: None)
  Receive Date: 20140710
  Receipt Date: 20140710
  Transmission Date: 20150326
  Serious: Yes (Hospitalization)
  Sender: FDA-Public Use
  Company Number: None

PATIENT
  Age: 78 Year
  Sex: Female
  Weight: 58.97 kg

DRUGS (1)
  1. DIPHENOXYLATE/ATROPINE [Suspect]
     Active Substance: ATROPINE\DIPHENOXYLATE
     Indication: DIARRHOEA
     Dosage: 2.5 MG, 1, 4X DAILY, BY MOUTH
     Route: 048
     Dates: start: 20140612, end: 20140612

REACTIONS (5)
  - Nausea [None]
  - Headache [None]
  - Asthenia [None]
  - Unevaluable event [None]
  - Dizziness [None]

NARRATIVE: CASE EVENT DATE: 20140612
